FAERS Safety Report 7146596-0 (Version None)
Quarter: 2010Q4

REPORT INFORMATION
  Report Type: 
  Country: None (occurrence: None)
  Receive Date: 20101208
  Receipt Date: 20101123
  Transmission Date: 20110411
  Serious: No
  Sender: FDA-Public Use
  Company Number: US-PFIZER INC-2010148517

PATIENT
  Sex: Male

DRUGS (2)
  1. ADVIL [Suspect]
     Indication: MYALGIA
     Dosage: 2 LIQUI-GELS
  2. ADVIL [Suspect]
     Indication: INFLAMMATION

REACTIONS (1)
  - DRUG INEFFECTIVE [None]
